FAERS Safety Report 21975907 (Version 1)
Quarter: 2023Q1

REPORT INFORMATION
  Report Type: Spontaneous
  Country: US (occurrence: US)
  Receive Date: 20230210
  Receipt Date: 20230210
  Transmission Date: 20230417
  Serious: Yes (Hospitalization, Other)
  Sender: FDA-Public Use
  Company Number: US-APOTEX-2023AP002715

PATIENT
  Age: 38 Year
  Sex: Male

DRUGS (2)
  1. ARIPIPRAZOLE [Interacting]
     Active Substance: ARIPIPRAZOLE
     Indication: Bipolar disorder
     Dosage: UNK
     Route: 065
  2. FLUOXETINE [Interacting]
     Active Substance: FLUOXETINE HYDROCHLORIDE
     Indication: Bipolar disorder
     Dosage: UNK
     Route: 065

REACTIONS (13)
  - Toxicity to various agents [Recovered/Resolved]
  - Drug interaction [Recovered/Resolved]
  - Electrocardiogram QRS complex prolonged [Recovered/Resolved]
  - Disturbance in attention [Recovered/Resolved]
  - Chorea [Recovered/Resolved]
  - Sinus tachycardia [Recovered/Resolved]
  - Rhabdomyolysis [Recovered/Resolved]
  - Restlessness [Recovered/Resolved]
  - Palpitations [Recovered/Resolved]
  - Blood creatine phosphokinase increased [Recovering/Resolving]
  - Alanine aminotransferase increased [Recovering/Resolving]
  - Electrocardiogram QT prolonged [Recovered/Resolved]
  - Tremor [Recovered/Resolved]
